FAERS Safety Report 8515157 (Version 2)
Quarter: 2014Q3

REPORT INFORMATION
  Report Type: Spontaneous
  Country: US (occurrence: None)
  Receive Date: 20120327
  Receipt Date: 20140709
  Transmission Date: 20150326
  Serious: Yes (Hospitalization, Other)
  Sender: FDA-Public Use
  Company Number: PHHY2011US34856

PATIENT
  Age: 58 Year
  Sex: Female

DRUGS (7)
  1. ALFERON N [Suspect]
     Active Substance: INTERFERON ALFA-N3
     Dosage: UNK UKN, UNK
  2. VITAMIN B12 [Concomitant]
     Active Substance: CYANOCOBALAMIN
  3. COQ 10 (UBIDECARENONE) [Concomitant]
  4. GLEEVEC [Suspect]
     Active Substance: IMATINIB MESYLATE
     Dosage: 400 MG, QD ; 300 MG, QD
  5. VITAMIN D3 (COLCALCIFEROL) [Concomitant]
  6. GRAPE SEED EXTRACT ^NATURAL FACTORS^ (VITIS VINIFERA EXTRACT) [Concomitant]
  7. FISH OIL [Concomitant]
     Active Substance: FISH OIL

REACTIONS (19)
  - Dreamy state [None]
  - Swelling face [None]
  - Eye haemorrhage [None]
  - Sinusitis [None]
  - Pain in extremity [None]
  - Nausea [None]
  - Swelling [None]
  - Pancreatitis [None]
  - Abdominal distension [None]
  - Oedema peripheral [None]
  - Conjunctival hyperaemia [None]
  - Pruritus [None]
  - Rash [None]
  - Alopecia [None]
  - Headache [None]
  - Vasodilatation [None]
  - Decreased appetite [None]
  - Vomiting [None]
  - Insomnia [None]
